FAERS Safety Report 8891886 (Version 1)
Quarter: 2012Q4

REPORT INFORMATION
  Report Type: Spontaneous
  Country: US (occurrence: None)
  Receive Date: 20121105
  Receipt Date: 20121105
  Transmission Date: 20130627
  Serious: Yes (Death, Life-Threatening, Hospitalization)
  Sender: FDA-Public Use
  Company Number: None

PATIENT
  Age: 64 Year
  Sex: Male
  Weight: 111 kg

DRUGS (1)
  1. WARFARIN [Suspect]
     Route: 048
     Dates: start: 20110419, end: 20120428

REACTIONS (7)
  - Haemorrhagic stroke [None]
  - Acute myocardial infarction [None]
  - Atrial fibrillation [None]
  - Gastrointestinal haemorrhage [None]
  - Myopathy [None]
  - Pneumonia [None]
  - Sepsis [None]
